FAERS Safety Report 8410304-3 (Version None)
Quarter: 2012Q2

REPORT INFORMATION
  Report Type: 
  Country: None (occurrence: None)
  Receive Date: 20120529
  Receipt Date: 20050728
  Transmission Date: 20120825
  Serious: Yes (Hospitalization, Other)
  Sender: FDA-Public Use
  Company Number: 15691-USA-05-1769

PATIENT
  Age: 68 Year
  Sex: Female

DRUGS (14)
  1. PROTONIX [Concomitant]
  2. NITROSTAT [Concomitant]
  3. LASIX [Concomitant]
  4. REGLAN /USA/ (METOCLOPRAMIDE HYDROCHLORIDE) [Concomitant]
  5. ALDACTONE [Concomitant]
  6. GLUCOTROL XL [Concomitant]
  7. VALIUM /NET/ (DIAZEPAM) [Concomitant]
  8. ASPIRIN [Concomitant]
  9. TOLVAPTAN (TOLVAPTAN(V.4.1)) 30MG [Suspect]
     Indication: CARDIAC FAILURE CONGESTIVE
     Dosage: 30 MG, QD, ORAL
     Route: 048
     Dates: start: 20050201
  10. DIOVAN [Concomitant]
  11. CORDARONE /NET/ (AMIODARONE HYDROCHLORIDE) [Concomitant]
  12. LEVOXYL [Concomitant]
  13. ALLOPURINOL [Concomitant]
  14. COREG [Concomitant]

REACTIONS (6)
  - PLEURAL EFFUSION [None]
  - ELECTROCARDIOGRAM QRS COMPLEX PROLONGED [None]
  - CARDIOMEGALY [None]
  - RIB FRACTURE [None]
  - RENAL FAILURE [None]
  - CHEST PAIN [None]
